FAERS Safety Report 10088772 (Version 1)
Quarter: 2014Q2

REPORT INFORMATION
  Report Type: Spontaneous
  Country: US (occurrence: US)
  Receive Date: 20140421
  Receipt Date: 20140421
  Transmission Date: 20141212
  Serious: No
  Sender: FDA-Public Use
  Company Number: US-BIOGENIDEC-2014BI033953

PATIENT
  Sex: Female
  Weight: 79 kg

DRUGS (23)
  1. TECFIDERA [Suspect]
     Indication: RELAPSING-REMITTING MULTIPLE SCLEROSIS
  2. TYSABRI [Concomitant]
     Indication: MULTIPLE SCLEROSIS
     Route: 042
     Dates: start: 20100803, end: 20120523
  3. IBUPROFEN [Concomitant]
     Route: 048
  4. ZOLOFT [Concomitant]
     Route: 048
  5. ALPRAZOLAM [Concomitant]
     Route: 048
     Dates: start: 20121105
  6. CARBAMAZEPINE [Concomitant]
     Route: 048
     Dates: start: 20131119
  7. METHYLPHENIDATE HCL [Concomitant]
     Route: 048
  8. GLUCOTROL [Concomitant]
     Route: 048
  9. TEMAZEPAM [Concomitant]
     Route: 048
     Dates: start: 20120803
  10. MORPHINE SULFATE [Concomitant]
     Route: 048
  11. PREDNISONE [Concomitant]
     Route: 048
     Dates: start: 20140331
  12. GLUCOPHAGE [Concomitant]
     Route: 048
  13. NEXIUM [Concomitant]
     Route: 048
     Dates: start: 20130911
  14. LISINOPRIL [Concomitant]
     Route: 048
  15. LANTUS SOLN [Concomitant]
  16. GABAPENTIN [Concomitant]
     Route: 048
     Dates: start: 20120322
  17. FENTANYL [Concomitant]
  18. PANTOPRAZOLE SODIUM [Concomitant]
     Route: 048
     Dates: start: 20140120
  19. RIZATRIPTAN BENZOATE [Concomitant]
     Route: 048
     Dates: start: 20131120
  20. RITALIN [Concomitant]
     Indication: FATIGUE
  21. ADDERALL [Concomitant]
     Indication: FATIGUE
     Dates: start: 20140401
  22. SOLU-MEDROL [Concomitant]
     Route: 042
  23. RITUXAN [Concomitant]

REACTIONS (4)
  - Drug intolerance [Unknown]
  - Weight increased [Unknown]
  - Gastrointestinal disorder [Unknown]
  - Multiple sclerosis relapse [Unknown]
